FAERS Safety Report 24221306 (Version 3)
Quarter: 2024Q3

REPORT INFORMATION
  Report Type: Spontaneous
  Country: US (occurrence: US)
  Receive Date: 20240819
  Receipt Date: 20240904
  Transmission Date: 20241016
  Serious: No
  Sender: BAUSCH AND LOMB
  Company Number: US-BAUSCH-BL-2024-012244

PATIENT
  Age: 62 Year
  Sex: Female

DRUGS (1)
  1. CROMOLYN SODIUM [Suspect]
     Active Substance: CROMOLYN SODIUM
     Indication: Hypersensitivity
     Dosage: 5 TIMES A DAY
     Route: 045

REACTIONS (4)
  - Muscular weakness [Unknown]
  - Epistaxis [Unknown]
  - Device issue [Unknown]
  - Manufacturing issue [Unknown]
